FAERS Safety Report 15860080 (Version 1)
Quarter: 2019Q1

REPORT INFORMATION
  Report Type: Spontaneous
  Country: US (occurrence: US)
  Receive Date: 20190123
  Receipt Date: 20190123
  Transmission Date: 20190417
  Serious: Yes (Hospitalization)
  Sender: FDA-Public Use
  Company Number: US-MYLANLABS-2019M1005492

PATIENT
  Age: 20 Month
  Sex: Female

DRUGS (3)
  1. CALCITONIN SALMON. [Suspect]
     Active Substance: CALCITONIN SALMON
     Indication: HYPERVITAMINOSIS D
     Dosage: UNK
  2. PREDNISONE. [Suspect]
     Active Substance: PREDNISONE
     Indication: HYPERVITAMINOSIS D
     Dosage: UNK
  3. ZOLEDRONIC ACID [Suspect]
     Active Substance: ZOLEDRONIC ACID
     Dosage: 1 DOSAGE FORM, ONCE

REACTIONS (5)
  - Drug ineffective [Unknown]
  - Product use issue [Unknown]
  - Hypercalcaemia [Unknown]
  - Tachycardia [Recovered/Resolved]
  - Product use in unapproved indication [Unknown]
